FAERS Safety Report 18999348 (Version 3)
Quarter: 2023Q1

REPORT INFORMATION
  Report Type: Spontaneous
  Country: US (occurrence: US)
  Receive Date: 20210312
  Receipt Date: 20230216
  Transmission Date: 20230418
  Serious: Yes (Other)
  Sender: FDA-Public Use
  Company Number: US-SANOFI-00510851

PATIENT
  Age: 58 Year
  Sex: Female

DRUGS (2)
  1. LEMTRADA [Suspect]
     Active Substance: ALEMTUZUMAB
     Indication: Relapsing-remitting multiple sclerosis
     Dosage: UNK
     Route: 042
     Dates: start: 20170410, end: 20170412
  2. LEMTRADA [Suspect]
     Active Substance: ALEMTUZUMAB
     Dosage: UNK
     Route: 042
     Dates: start: 20160418, end: 20160422

REACTIONS (3)
  - Thyroid cancer [Unknown]
  - Thyroid mass [Unknown]
  - Goitre [Unknown]

NARRATIVE: CASE EVENT DATE: 20210301
